FAERS Safety Report 19063655 (Version 1)
Quarter: 2021Q1

REPORT INFORMATION
  Report Type: Spontaneous
  Country: NL (occurrence: FR)
  Receive Date: 20210326
  Receipt Date: 20210326
  Transmission Date: 20210420
  Serious: Yes (Hospitalization)
  Sender: FDA-Public Use
  Company Number: FR-FRESENIUS KABI-FK202103010

PATIENT
  Age: 62 Year
  Sex: Male
  Weight: 79 kg

DRUGS (18)
  1. SODIUM BICARBONATE/POTASSIUM CHLORIDE/SODIUM CHLORIDE/MACROGOL 3350 [Concomitant]
     Active Substance: POLYETHYLENE GLYCOL 3350\POTASSIUM CHLORIDE\SODIUM BICARBONATE\SODIUM CHLORIDE
  2. LINEZOLID KABI [Suspect]
     Active Substance: LINEZOLID
     Indication: INFLAMMATORY MARKER INCREASED
     Route: 042
     Dates: start: 20210128, end: 20210202
  3. ATORVASTATIN [Concomitant]
     Active Substance: ATORVASTATIN
  4. NOREPINEPHRINE. [Concomitant]
     Active Substance: NOREPINEPHRINE
  5. PROPOFOL. [Suspect]
     Active Substance: PROPOFOL
     Indication: SEDATION
     Route: 042
     Dates: start: 20210130, end: 20210211
  6. ACICLOVIR [Concomitant]
     Active Substance: ACYCLOVIR
     Route: 042
  7. SULFAMETHOXAZOLE/TRIMETHOPRIM [Concomitant]
     Active Substance: SULFAMETHOXAZOLE\TRIMETHOPRIM
  8. PREDNISOLONE METASULFOBENZOATE SODIUM [Concomitant]
     Active Substance: PREDNISOLONE SODIUM METAZOATE
  9. LANSOPRAZOLE. [Concomitant]
     Active Substance: LANSOPRAZOLE
  10. BISOPROLOL FUMARATE. [Concomitant]
     Active Substance: BISOPROLOL FUMARATE
  11. CYAMEMAZINE TARTRATE [Concomitant]
     Active Substance: CYAMEMAZINE
  12. ACETYLSALICYLATE LYSINE [Concomitant]
     Active Substance: ASPIRIN DL-LYSINE
  13. CICLOSPORIN [Concomitant]
     Active Substance: CYCLOSPORINE
  14. MYCOPHENOLATE MOFETIL HYDROCHLORIDE [Concomitant]
     Active Substance: MYCOPHENOLATE MOFETIL HYDROCHLORIDE
  15. ALBUMIN HUMAN [Concomitant]
     Active Substance: ALBUMIN HUMAN
  16. SUFENTANIL [Concomitant]
     Active Substance: SUFENTANIL
  17. CEFEPIME HYDROCHLORIDE. [Suspect]
     Active Substance: CEFEPIME HYDROCHLORIDE
     Indication: INFLAMMATORY MARKER INCREASED
     Route: 042
     Dates: start: 20210126, end: 20210203
  18. VALGANCICLOVIR. [Concomitant]
     Active Substance: VALGANCICLOVIR

REACTIONS (1)
  - Acute kidney injury [Recovered/Resolved]

NARRATIVE: CASE EVENT DATE: 20210202
